FAERS Safety Report 12484790 (Version 1)
Quarter: 2016Q2

REPORT INFORMATION
  Report Type: Spontaneous
  Country: US (occurrence: None)
  Receive Date: 20160620
  Receipt Date: 20160620
  Transmission Date: 20160815
  Serious: Yes (Hospitalization)
  Sender: FDA-Public Use
  Company Number: None

PATIENT
  Age: 58 Year
  Sex: Female
  Weight: 86.18 kg

DRUGS (15)
  1. SEASONAL INFLUENZA VACCINE [Concomitant]
     Active Substance: INFLUENZA VIRUS VACCINE
  2. ATROVASTATIN [Concomitant]
     Active Substance: ATORVASTATIN CALCIUM
  3. AMITRIPTYLINE [Concomitant]
     Active Substance: AMITRIPTYLINE
  4. RANIBIZUMAUB 0.3 MG [Suspect]
     Active Substance: RANIBIZUMAB
     Indication: DIABETIC RETINAL OEDEMA
     Dosage: 0.05MG MONTHLY INTRAVITREAL
     Dates: start: 20140917
  5. FLORINEF ACETATE [Concomitant]
     Active Substance: FLUDROCORTISONE ACETATE
  6. ONDANSETRON HCL [Concomitant]
     Active Substance: ONDANSETRON HYDROCHLORIDE
  7. BENAZEPRIL [Concomitant]
     Active Substance: BENAZEPRIL HYDROCHLORIDE
  8. AMLODIPINE BESYLATE. [Concomitant]
     Active Substance: AMLODIPINE BESYLATE
  9. MIDODRINE [Concomitant]
     Active Substance: MIDODRINE
  10. METFORMIN [Concomitant]
     Active Substance: METFORMIN HYDROCHLORIDE
  11. LOPERAMIDE [Concomitant]
     Active Substance: LOPERAMIDE
  12. LISINOPRIL. [Concomitant]
     Active Substance: LISINOPRIL
  13. GLIPIZIDE. [Concomitant]
     Active Substance: GLIPIZIDE
  14. GABAPENTIN. [Concomitant]
     Active Substance: GABAPENTIN
  15. HEADACHE RELIEF (ACETAMINOPHEN, ASPIRIN, COFFEE TABLETS) [Concomitant]

REACTIONS (3)
  - Asthenia [None]
  - Vomiting [None]
  - Diarrhoea [None]

NARRATIVE: CASE EVENT DATE: 20160518
